FAERS Safety Report 22605492 (Version 1)
Quarter: 2023Q2

REPORT INFORMATION
  Report Type: Spontaneous
  Country: US (occurrence: US)
  Receive Date: 20230615
  Receipt Date: 20230615
  Transmission Date: 20230722
  Serious: Yes (Death, Hospitalization, Other)
  Sender: FDA-Public Use
  Company Number: US-AMGEN-USASP2023098842

PATIENT
  Age: 66 Year
  Sex: Male

DRUGS (2)
  1. XGEVA [Suspect]
     Active Substance: DENOSUMAB
     Indication: Breast cancer metastatic
     Dosage: UNK
     Route: 065
  2. TAMOXIFEN [Concomitant]
     Active Substance: TAMOXIFEN
     Dosage: UNK
     Route: 065

REACTIONS (14)
  - Death [Fatal]
  - Breast cancer metastatic [Unknown]
  - Spinal compression fracture [Unknown]
  - Pathological fracture [Unknown]
  - Brain abscess [Unknown]
  - Mental status changes [Unknown]
  - Lethargy [Unknown]
  - Hypercalcaemia [Unknown]
  - Osteonecrosis of jaw [Unknown]
  - COVID-19 [Unknown]
  - Memory impairment [Unknown]
  - Mobility decreased [Unknown]
  - Oedema peripheral [Unknown]
  - Pain in extremity [Unknown]
